FAERS Safety Report 25348504 (Version 1)
Quarter: 2025Q2

REPORT INFORMATION
  Report Type: Spontaneous
  Country: US (occurrence: None)
  Receive Date: 20250522
  Receipt Date: 20250522
  Transmission Date: 20250717
  Serious: Yes (Death, Hospitalization)
  Sender: FDA-CTU
  Company Number: None

PATIENT
  Age: 70 Year
  Sex: Male
  Weight: 123 kg

DRUGS (2)
  1. DABRAFENIB [Suspect]
     Active Substance: DABRAFENIB
     Indication: Malignant melanoma
     Dosage: FREQUENCY : TWICE A DAY;?
     Route: 048
     Dates: start: 20250331, end: 20250510
  2. trametinib 2 mg po once daily [Concomitant]
     Dosage: FREQUENCY : DAILY;?
     Route: 048
     Dates: start: 20250331, end: 20250510

REACTIONS (17)
  - Malaise [None]
  - Dysarthria [None]
  - Pneumonia [None]
  - Oxygen consumption increased [None]
  - Acute respiratory failure [None]
  - General physical health deterioration [None]
  - Thrombocytopenia [None]
  - Blood lactic acid increased [None]
  - Hypertransaminasaemia [None]
  - Prothrombin time ratio increased [None]
  - Activated partial thromboplastin time prolonged [None]
  - Hyperferritinaemia [None]
  - Haemophagocytic lymphohistiocytosis [None]
  - Cardiac arrest [None]
  - Acidosis [None]
  - Renal failure [None]
  - Nausea [None]

NARRATIVE: CASE EVENT DATE: 20250506
